FAERS Safety Report 17451914 (Version 1)
Quarter: 2020Q1

REPORT INFORMATION
  Report Type: Spontaneous
  Country: US (occurrence: US)
  Receive Date: 20200224
  Receipt Date: 20200224
  Transmission Date: 20200409
  Serious: Yes (Other)
  Sender: FDA-Public Use
  Company Number: None

PATIENT
  Age: 73 Year
  Sex: Female
  Weight: 55.8 kg

DRUGS (22)
  1. ZALEPLON 10MG [Concomitant]
  2. VELCADE 3.5MG IJ [Concomitant]
     Dates: end: 20200204
  3. POMOLYST 3MG [Concomitant]
  4. MELATONIN 3MG [Concomitant]
  5. DARZALEX [Concomitant]
     Active Substance: DARATUMUMAB
  6. ASPIRIN. [Concomitant]
     Active Substance: ASPIRIN
  7. APAP 325MG [Concomitant]
  8. SENNA 8.6MG/DOCUSATE 100MG [Concomitant]
  9. PROTONIX [Concomitant]
     Active Substance: PANTOPRAZOLE SODIUM
  10. PAXIL [Concomitant]
     Active Substance: PAROXETINE HYDROCHLORIDE
  11. VITAMIN D 1,000 U [Concomitant]
  12. NINLARO [Suspect]
     Active Substance: IXAZOMIB CITRATE
     Indication: PLASMA CELL MYELOMA
     Dosage: ?          OTHER FREQUENCY:DAYS 1, 8, 15 Q28;?
     Route: 048
     Dates: start: 20200118, end: 20200224
  13. METOPROLOL SUCCINATE 50G [Concomitant]
  14. IBUPROFEN 600 MG [Concomitant]
     Active Substance: IBUPROFEN
     Dates: end: 20200204
  15. PROCHLORPERAZINE 10MG [Concomitant]
  16. IMIQUIMOD 5% [Concomitant]
     Active Substance: IMIQUIMOD
     Dates: end: 20200204
  17. ACYCLOVIR 400MG [Concomitant]
     Active Substance: ACYCLOVIR
  18. BIOTIN [Concomitant]
     Active Substance: BIOTIN
  19. REVLIMID [Concomitant]
     Active Substance: LENALIDOMIDE
     Dates: start: 20171206
  20. POTASSIUM CHLORIDE ER 20MEQ [Concomitant]
  21. DIAZEPAM 5MG [Concomitant]
     Active Substance: DIAZEPAM
  22. DEXAMETHASONE 4MG [Concomitant]
     Active Substance: DEXAMETHASONE

REACTIONS (2)
  - Therapy cessation [None]
  - Platelet count decreased [None]
